FAERS Safety Report 21932810 (Version 1)
Quarter: 2023Q1

REPORT INFORMATION
  Report Type: Spontaneous
  Country: FR (occurrence: FR)
  Receive Date: 20230131
  Receipt Date: 20230131
  Transmission Date: 20230417
  Serious: Yes (Other)
  Sender: FDA-Public Use
  Company Number: FR-HALEON-FRCH2023GSK004262

PATIENT

DRUGS (1)
  1. IBUPROFEN [Suspect]
     Active Substance: IBUPROFEN
     Indication: Product used for unknown indication
     Dosage: 400 MG

REACTIONS (6)
  - Anaphylactic reaction [Unknown]
  - NSAID exacerbated respiratory disease [Unknown]
  - Asthma [Unknown]
  - Hypotonia [Unknown]
  - Vomiting [Unknown]
  - Urticaria [Unknown]
